FAERS Safety Report 7115560-X (Version None)
Quarter: 2010Q4

REPORT INFORMATION
  Report Type: 
  Country: None (occurrence: None)
  Receive Date: 20101122
  Receipt Date: 20101110
  Transmission Date: 20110411
  Serious: Yes (Other)
  Sender: FDA-Public Use
  Company Number: US-PFIZER INC-2010149672

PATIENT
  Age: 58 Year
  Sex: Male
  Weight: 88.435 kg

DRUGS (2)
  1. ADVIL PM [Suspect]
     Indication: INSOMNIA
     Dosage: UNK
     Route: 048
     Dates: start: 20101108, end: 20101108
  2. ADVIL PM [Suspect]
     Indication: PAIN

REACTIONS (2)
  - CONDITION AGGRAVATED [None]
  - CONVULSION [None]
